FAERS Safety Report 11325990 (Version 2)
Quarter: 2015Q3

REPORT INFORMATION
  Report Type: Spontaneous
  Country: US (occurrence: US)
  Receive Date: 20150731
  Receipt Date: 20150802
  Transmission Date: 20151125
  Serious: No
  Sender: FDA-Public Use
  Company Number: US-009507513-1507USA008986

PATIENT
  Age: 25 Year
  Sex: Female
  Weight: 99.32 kg

DRUGS (1)
  1. IMPLANON [Suspect]
     Active Substance: ETONOGESTREL
     Indication: CONTRACEPTION
     Dosage: 1 DF, EVERY 3 YEARS (LEFT ARM)
     Route: 059
     Dates: start: 20130429

REACTIONS (16)
  - Vaginal infection [Unknown]
  - Weight increased [Unknown]
  - Menstruation irregular [Unknown]
  - Viral infection [Unknown]
  - Headache [Unknown]
  - Nausea [Unknown]
  - Breast pain [Unknown]
  - Abdominal pain upper [Unknown]
  - Depressed mood [Unknown]
  - Pain [Unknown]
  - Dysmenorrhoea [Unknown]
  - Back pain [Unknown]
  - Dizziness [Unknown]
  - Mood swings [Unknown]
  - Nervousness [Unknown]
  - Acne [Unknown]

NARRATIVE: CASE EVENT DATE: 20130429
